FAERS Safety Report 9401390 (Version 1)
Quarter: 2013Q3

REPORT INFORMATION
  Report Type: Spontaneous
  Country: CN (occurrence: CN)
  Receive Date: 20130715
  Receipt Date: 20130715
  Transmission Date: 20140515
  Serious: Yes (Other)
  Sender: FDA-Public Use
  Company Number: CN-BAXTER-2013BAX026666

PATIENT
  Age: 46 Year
  Sex: Male
  Weight: 50 kg

DRUGS (2)
  1. 5% GLUCOSE AND 0.9% SODIUM CHLORIDE INJECTION [Suspect]
     Indication: MEDICATION DILUTION
     Route: 042
     Dates: start: 20120711, end: 20120711
  2. VITAMIN K1 [Suspect]
     Indication: HAEMORRHAGE
     Route: 042
     Dates: start: 20120711, end: 20120711

REACTIONS (3)
  - Infusion related reaction [Recovered/Resolved]
  - Temperature intolerance [Recovered/Resolved]
  - Pyrexia [Recovered/Resolved]
